FAERS Safety Report 26173370 (Version 1)
Quarter: 2025Q4

REPORT INFORMATION
  Report Type: Spontaneous
  Country: US (occurrence: US)
  Receive Date: 20251218
  Receipt Date: 20251218
  Transmission Date: 20260118
  Serious: Yes (Other)
  Sender: GC Biopharma
  Company Number: US-GC BIOPHARMA-US-2025-GCBP-00032

PATIENT
  Age: 47 Year
  Sex: Female
  Weight: 95.25 kg

DRUGS (6)
  1. ALYGLO [Suspect]
     Active Substance: HUMAN IMMUNOGLOBULIN G-STWK
     Indication: Myelin oligodendrocyte glycoprotein antibody-associated disease
     Dosage: 95 GRAM, 4W (10GM X 9 VIALS AND 5GM X 1VIAL)
     Route: 042
     Dates: start: 20250910, end: 20250910
  2. ALYGLO [Suspect]
     Active Substance: HUMAN IMMUNOGLOBULIN G-STWK
     Dosage: 95 GRAM, 4W (5GM X1VIAL, 10GM X1VIAL AND 20GM X4 VIALS)
     Route: 042
     Dates: start: 20250219, end: 20250219
  3. BENADRYL ALLERGY [Concomitant]
     Active Substance: DIPHENHYDRAMINE HYDROCHLORIDE
     Indication: Premedication
     Dosage: 25 MILLIGRAM, UNK
     Route: 042
     Dates: start: 20250910
  4. TYLENOL [Concomitant]
     Active Substance: ACETAMINOPHEN
     Indication: Premedication
     Dosage: 650 MILLIGRAM, UNK
     Route: 048
     Dates: start: 20250910
  5. ZOFRAN [Concomitant]
     Active Substance: ONDANSETRON HYDROCHLORIDE
     Indication: Premedication
     Dosage: 4 MG OVER 2-3 MINUTES IV PUSH
     Route: 042
     Dates: start: 20250910, end: 20250910
  6. SODIUM CHLORIDE [Concomitant]
     Active Substance: SODIUM CHLORIDE
     Indication: Prophylaxis against dehydration
     Dosage: 0.9% NACL 500 ML
     Route: 065
     Dates: start: 20250910, end: 20250910

REACTIONS (2)
  - Urticaria [Recovered/Resolved]
  - Off label use [Unknown]

NARRATIVE: CASE EVENT DATE: 20250219
